FAERS Safety Report 15100881 (Version 1)
Quarter: 2018Q3

REPORT INFORMATION
  Report Type: Spontaneous
  Country: DE (occurrence: DE)
  Receive Date: 20180703
  Receipt Date: 20180703
  Transmission Date: 20181010
  Serious: Yes (Death, Other)
  Sender: FDA-Public Use
  Company Number: DE-DEXPHARM-20180427

PATIENT
  Sex: Male

DRUGS (14)
  1. DONEPEZIL. [Suspect]
     Active Substance: DONEPEZIL
  2. SEROQUEL [Suspect]
     Active Substance: QUETIAPINE FUMARATE
  3. LANTUS [Suspect]
     Active Substance: INSULIN GLARGINE
  4. METFORMIN [Suspect]
     Active Substance: METFORMIN HYDROCHLORIDE
  5. TAMSULOSIN [Suspect]
     Active Substance: TAMSULOSIN
  6. FALITHROM [Suspect]
     Active Substance: PHENPROCOUMON
  7. APIDRA [Suspect]
     Active Substance: INSULIN GLULISINE
  8. ALLOPURINOL. [Suspect]
     Active Substance: ALLOPURINOL
  9. CANDECOR COMP. [Suspect]
     Active Substance: CANDESARTAN CILEXETIL\HYDROCHLOROTHIAZIDE
  10. RISPERDAL [Suspect]
     Active Substance: RISPERIDONE
  11. LEVOMEPROMAZIN [Suspect]
     Active Substance: LEVOMEPROMAZINE
  12. SIMVASTATIN. [Suspect]
     Active Substance: SIMVASTATIN
  13. TOREM [Suspect]
     Active Substance: TORSEMIDE
  14. BISOPROLOL [Suspect]
     Active Substance: BISOPROLOL

REACTIONS (2)
  - Balance disorder [Unknown]
  - Renal failure [Unknown]
